FAERS Safety Report 4819819-8 (Version None)
Quarter: 2005Q4

REPORT INFORMATION
  Report Type: 
  Country: None (occurrence: None)
  Receive Date: 20051102
  Receipt Date: 20051010
  Transmission Date: 20060501
  Serious: Yes (Hospitalization)
  Sender: FDA-Public Use
  Company Number: GBR-2005-0001947

PATIENT
  Age: 73 Year
  Sex: Female

DRUGS (7)
  1. HYDROMORPHONE HCL [Suspect]
     Indication: DRUG USE FOR UNKNOWN INDICATION
     Dosage: 4 MG, BID, ORAL
     Route: 048
     Dates: start: 20050221, end: 20050408
  2. BISOPROLOL FUMARATE [Suspect]
     Indication: DRUG USE FOR UNKNOWN INDICATION
     Dosage: 10 MG, DAILY
     Dates: end: 20050408
  3. NEXIUM [Concomitant]
  4. LAROXYL (AMTRIPTYLINE HYDROCHLORIDE) [Concomitant]
  5. DAFALGAN [Concomitant]
  6. PREDNISONE [Concomitant]
  7. CLONAZEPAM [Concomitant]

REACTIONS (4)
  - AMNESIA [None]
  - FALL [None]
  - HYPOTENSION [None]
  - SUPRAVENTRICULAR EXTRASYSTOLES [None]
